FAERS Safety Report 8011207-9 (Version None)
Quarter: 2011Q4

REPORT INFORMATION
  Report Type: 
  Country: None (occurrence: None)
  Receive Date: 20111222
  Receipt Date: 20111214
  Transmission Date: 20120403
  Serious: Yes (Other)
  Sender: FDA-Public Use
  Company Number: 1139776

PATIENT
  Age: 64 Year
  Sex: Female
  Weight: 40.3 kg

DRUGS (5)
  1. IRINOTECAN HYDROCHLORIDE [Concomitant]
  2. CAPECITABINE [Concomitant]
  3. OXALIPLATIN [Suspect]
     Indication: PANCREATIC CARCINOMA
     Dosage: 130 MG MILLIGRAM(S), INTRAVENOUS
     Route: 041
     Dates: start: 20111208, end: 20111208
  4. GRANISETRON [Concomitant]
  5. FLUOROURACIL [Concomitant]

REACTIONS (4)
  - VISION BLURRED [None]
  - BREATH SOUNDS ABNORMAL [None]
  - DYSPHONIA [None]
  - HYPOAESTHESIA [None]
